FAERS Safety Report 8310585-0 (Version None)
Quarter: 2012Q2

REPORT INFORMATION
  Report Type: 
  Country: None (occurrence: None)
  Receive Date: 20120425
  Receipt Date: 20120425
  Transmission Date: 20120825
  Serious: No
  Sender: FDA-Public Use
  Company Number: None

PATIENT
  Age: 69 Year
  Sex: Female
  Weight: 65.77 kg

DRUGS (1)
  1. BONIVA [Suspect]
     Indication: OSTEOPOROSIS PROPHYLAXIS
     Dosage: ONE 150 MG TABLET
     Route: 048
     Dates: start: 20110708, end: 20111203

REACTIONS (15)
  - MUSCLE TWITCHING [None]
  - HEADACHE [None]
  - IMPAIRED WORK ABILITY [None]
  - DIARRHOEA [None]
  - MYALGIA [None]
  - MUSCLE SPASMS [None]
  - ARTHRALGIA [None]
  - BONE PAIN [None]
  - BACK PAIN [None]
  - RASH [None]
  - JOINT SWELLING [None]
  - PAIN IN EXTREMITY [None]
  - NAUSEA [None]
  - INFLUENZA LIKE ILLNESS [None]
  - ABDOMINAL PAIN UPPER [None]
